FAERS Safety Report 7845381-1 (Version None)
Quarter: 2011Q4

REPORT INFORMATION
  Report Type: 
  Country: None (occurrence: None)
  Receive Date: 20111025
  Receipt Date: 20111017
  Transmission Date: 20120403
  Serious: Yes (Other)
  Sender: FDA-Public Use
  Company Number: US-ASTRAZENECA-2011SE62288

PATIENT
  Age: 62 Year
  Sex: Female

DRUGS (2)
  1. LISINOPRIL [Suspect]
     Route: 048
  2. DILTIAZEM HCL [Suspect]
     Route: 065

REACTIONS (2)
  - JOINT DISLOCATION [None]
  - BLOOD PRESSURE INCREASED [None]
